FAERS Safety Report 7366184-0 (Version None)
Quarter: 2011Q1

REPORT INFORMATION
  Report Type: 
  Country: None (occurrence: None)
  Receive Date: 20110322
  Receipt Date: 20110308
  Transmission Date: 20110831
  Serious: Yes (Hospitalization)
  Sender: FDA-Public Use
  Company Number: PL-RANBAXY-2011RR-42947

PATIENT
  Sex: Female

DRUGS (1)
  1. KLABAX [Suspect]
     Dosage: UNK MG, UNK
     Route: 048

REACTIONS (1)
  - ANAPHYLACTIC SHOCK [None]
